FAERS Safety Report 8709819 (Version 2)
Quarter: 2012Q4

REPORT INFORMATION
  Report Type: 
  Country: JP (occurrence: JP)
  Receive Date: 20120806
  Receipt Date: 20120925
  Transmission Date: 20130627
  Serious: Yes (Death, Life-Threatening)
  Sender: FDA-Public Use
  Company Number: JP-ELI_LILLY_AND_COMPANY-JP201207007897

PATIENT
  Age: 72 Year
  Sex: Male

DRUGS (16)
  1. CYMBALTA [Suspect]
     Indication: CANCER PAIN
     Dosage: UNK
     Route: 048
     Dates: start: 20120625, end: 20120703
  2. OXYCONTIN [Concomitant]
     Indication: CANCER PAIN
     Dosage: UNK
     Route: 048
     Dates: start: 20120616, end: 20120617
  3. OXYCONTIN [Concomitant]
     Dosage: UNK
     Route: 048
     Dates: start: 20120618, end: 20120622
  4. OXYCONTIN [Concomitant]
     Dosage: UNK
     Route: 048
     Dates: start: 20120623, end: 20120624
  5. OXYCONTIN [Concomitant]
     Dosage: UNK
     Route: 048
     Dates: start: 20120625
  6. OXINORM                            /00045603/ [Concomitant]
     Indication: CANCER PAIN
     Dosage: UNK
     Route: 048
     Dates: start: 20120615, end: 20120617
  7. OXINORM                            /00045603/ [Concomitant]
     Dosage: UNK
     Route: 048
     Dates: start: 20120618, end: 20120704
  8. HYPEN [Concomitant]
     Indication: CANCER PAIN
     Dosage: UNK
     Route: 048
     Dates: start: 20120528, end: 20120703
  9. TAKEPRON [Concomitant]
     Indication: PROPHYLAXIS
     Dosage: UNK
     Route: 048
     Dates: start: 20120528, end: 20120703
  10. FLOMOX [Concomitant]
     Dosage: UNK
     Route: 048
     Dates: start: 20120618, end: 20120621
  11. LYRICA [Concomitant]
     Indication: CANCER PAIN
     Dosage: UNK
     Route: 048
     Dates: start: 20120620, end: 20120624
  12. MAGMITT [Concomitant]
     Indication: PROPHYLAXIS
     Dosage: UNK
     Route: 048
     Dates: start: 20120623, end: 20120703
  13. VOLTAREN                           /00372302/ [Concomitant]
     Indication: CANCER PAIN
     Dosage: UNK
     Route: 048
     Dates: start: 20120626
  14. VOLTAREN                           /00372302/ [Concomitant]
     Indication: CANCER PAIN
     Dosage: UNK
     Route: 061
     Dates: start: 20120528
  15. ZOMETA [Concomitant]
     Indication: BLADDER CANCER
     Dosage: UNK
     Route: 065
     Dates: start: 20120628, end: 20120628
  16. LASIX [Concomitant]
     Dosage: UNK
     Route: 065
     Dates: start: 20120630, end: 20120701

REACTIONS (4)
  - Sputum retention [Not Recovered/Not Resolved]
  - Pneumonia aspiration [Fatal]
  - Somnolence [Not Recovered/Not Resolved]
  - Off label use [Recovered/Resolved]
